FAERS Safety Report 20406207 (Version 1)
Quarter: 2022Q1

REPORT INFORMATION
  Report Type: Spontaneous
  Country: US (occurrence: None)
  Receive Date: 20220129
  Receipt Date: 20220129
  Transmission Date: 20220423
  Serious: Yes (Life-Threatening, Hospitalization, Disabling, Other)
  Sender: FDA-Public Use
  Company Number: None

PATIENT
  Age: 55 Year
  Sex: Female
  Weight: 116.12 kg

DRUGS (3)
  1. NORVASC [Suspect]
     Active Substance: AMLODIPINE BESYLATE
     Indication: Product used for unknown indication
     Route: 048
     Dates: start: 20211109
  2. MIRALAX [Suspect]
     Active Substance: POLYETHYLENE GLYCOL 3350
  3. ZOLOFT [Suspect]
     Active Substance: SERTRALINE HYDROCHLORIDE

REACTIONS (17)
  - Expired product administered [None]
  - Malaise [None]
  - Product physical issue [None]
  - Product physical issue [None]
  - Stress [None]
  - Abdominal discomfort [None]
  - Bowel movement irregularity [None]
  - Faeces hard [None]
  - Refusal of treatment by patient [None]
  - Chest pain [None]
  - Pruritus [None]
  - Arthralgia [None]
  - Arthralgia [None]
  - Pain of skin [None]
  - COVID-19 pneumonia [None]
  - Asthma-chronic obstructive pulmonary disease overlap syndrome [None]
  - Heart valve incompetence [None]

NARRATIVE: CASE EVENT DATE: 20211229
